FAERS Safety Report 9426292 (Version 2)
Quarter: 2013Q3

REPORT INFORMATION
  Report Type: Report from Study
  Country: TW (occurrence: TW)
  Receive Date: 20130730
  Receipt Date: 20130823
  Transmission Date: 20140515
  Serious: Yes (Other)
  Sender: FDA-Public Use
  Company Number: PHHY2013TW077927

PATIENT
  Sex: Male
  Weight: 70 kg

DRUGS (1)
  1. ZOLEDRONATE [Suspect]
     Indication: PLASMA CELL MYELOMA
     Dosage: UNK UKN, UNK
     Route: 042
     Dates: start: 20130621

REACTIONS (1)
  - Neuropathy peripheral [Recovered/Resolved with Sequelae]
